FAERS Safety Report 9663228 (Version 4)
Quarter: 2013Q4

REPORT INFORMATION
  Report Type: Spontaneous
  Country: US (occurrence: US)
  Receive Date: 20131101
  Receipt Date: 20131219
  Transmission Date: 20140711
  Serious: No
  Sender: FDA-Public Use
  Company Number: US-BIOGENIDEC-2013BI101169

PATIENT
  Age: 35 Year
  Sex: Female

DRUGS (12)
  1. AVONEX [Suspect]
     Indication: RELAPSING-REMITTING MULTIPLE SCLEROSIS
     Route: 030
     Dates: start: 20131008
  2. AVONEX [Suspect]
     Indication: RELAPSING-REMITTING MULTIPLE SCLEROSIS
     Route: 030
     Dates: start: 20131015
  3. AVONEX [Suspect]
     Indication: RELAPSING-REMITTING MULTIPLE SCLEROSIS
     Route: 030
     Dates: start: 20131022
  4. AVONEX [Suspect]
     Indication: RELAPSING-REMITTING MULTIPLE SCLEROSIS
     Route: 030
     Dates: start: 20131029
  5. VICODIN [Concomitant]
     Indication: MULTIPLE SCLEROSIS
     Route: 048
     Dates: start: 20101210
  6. VICODIN [Concomitant]
     Indication: HYPOAESTHESIA
     Route: 048
     Dates: start: 20101210
  7. VICODIN [Concomitant]
     Indication: PARAESTHESIA
     Route: 048
     Dates: start: 20101210
  8. TYLENOL [Concomitant]
     Indication: HEADACHE
     Route: 048
     Dates: start: 20091102
  9. AMBIEN [Concomitant]
     Indication: SLEEP DISORDER
     Route: 048
     Dates: start: 20101201
  10. ADVIL [Concomitant]
     Indication: PAIN
     Route: 048
     Dates: start: 20101201
  11. ADVIL [Concomitant]
     Indication: HEADACHE
     Route: 048
     Dates: start: 20101201
  12. AMITRIPTYLINE [Concomitant]
     Indication: PARAESTHESIA
     Route: 048
     Dates: start: 20121201

REACTIONS (10)
  - Overdose [Recovered/Resolved]
  - Stress [Unknown]
  - Cold sweat [Not Recovered/Not Resolved]
  - Poor quality sleep [Not Recovered/Not Resolved]
  - Chills [Recovered/Resolved]
  - Pyrexia [Recovered/Resolved]
  - Pain [Recovered/Resolved]
  - Vomiting [Recovered/Resolved]
  - Night sweats [Not Recovered/Not Resolved]
  - Influenza like illness [Not Recovered/Not Resolved]
